FAERS Safety Report 14982485 (Version 1)
Quarter: 2018Q2

REPORT INFORMATION
  Report Type: Spontaneous
  Country: US (occurrence: US)
  Receive Date: 20180515
  Receipt Date: 20180515
  Transmission Date: 20180711
  Serious: No
  Sender: FDA-Public Use
  Company Number: None

PATIENT
  Age: 25 Year
  Sex: Male

DRUGS (2)
  1. VIVITROL [Suspect]
     Active Substance: NALTREXONE
     Indication: DRUG USE DISORDER
     Route: 030
     Dates: start: 20170921, end: 20180318
  2. VIVITROL [Suspect]
     Active Substance: NALTREXONE

REACTIONS (3)
  - Nightmare [None]
  - Speech disorder [None]
  - Mobility decreased [None]
